FAERS Safety Report 4728362-6 (Version None)
Quarter: 2005Q3

REPORT INFORMATION
  Report Type: 
  Country: None (occurrence: None)
  Receive Date: 20050727
  Receipt Date: 20050719
  Transmission Date: 20060218
  Serious: Yes (Hospitalization)
  Sender: FDA-Public Use
  Company Number: 200512211GDS

PATIENT
  Age: 75 Year
  Sex: Male
  Weight: 90 kg

DRUGS (9)
  1. ASPIRIN [Suspect]
     Dosage: 81 MG, TOTAL DAILY,
  2. CITALOPRAM [Suspect]
     Dosage: 40 MG, TOTAL DAILY,
  3. LEVOFLOXACIN [Suspect]
     Indication: URINARY TRACT INFECTION
     Dosage: 500 MG, TOTAL DAILY,
  4. DONEPEZIL HCL [Suspect]
     Dosage: 10 MG, TOTAL DAILY,
  5. DOXAZOSIN [Concomitant]
  6. FOLATE SODIUM [Concomitant]
  7. GABAPENTIN [Concomitant]
  8. DIVALPROEX SODIUM [Concomitant]
  9. RANITIDINE [Concomitant]

REACTIONS (3)
  - CONDITION AGGRAVATED [None]
  - CONVULSION [None]
  - PLATELET COUNT DECREASED [None]
